FAERS Safety Report 4487338-7 (Version None)
Quarter: 2004Q4

REPORT INFORMATION
  Report Type: 
  Country: None (occurrence: None)
  Receive Date: 20041027
  Receipt Date: 20041018
  Transmission Date: 20050328
  Serious: Yes (Other)
  Sender: FDA-Public Use
  Company Number: AU-MERCK-0410AUS00206

PATIENT
  Age: 84 Year
  Sex: Female

DRUGS (1)
  1. SIMVASTATIN [Suspect]
     Route: 048

REACTIONS (2)
  - BREAST CANCER FEMALE [None]
  - MALIGNANT MELANOMA [None]
